FAERS Safety Report 7754469-5 (Version None)
Quarter: 2011Q3

REPORT INFORMATION
  Report Type: 
  Country: None (occurrence: None)
  Receive Date: 20110915
  Receipt Date: 20110913
  Transmission Date: 20111222
  Serious: No
  Sender: FDA-Public Use
  Company Number: US-B.I. PHARMACEUTICALS,INC./RIDGEFIELD-2011-BP-22199BP

PATIENT
  Sex: Female

DRUGS (3)
  1. LOPRESSOR [Concomitant]
     Indication: HEART RATE INCREASED
  2. VERPAMIL HCL [Concomitant]
     Indication: HYPERTENSION
     Dosage: 240 MG
  3. MICARDIS HCT [Suspect]
     Indication: HYPERTENSION
     Route: 048
     Dates: start: 20101201, end: 20110301

REACTIONS (4)
  - PALPITATIONS [None]
  - URINE OUTPUT INCREASED [None]
  - LETHARGY [None]
  - SLUGGISHNESS [None]
